FAERS Safety Report 14951526 (Version 2)
Quarter: 2018Q2

REPORT INFORMATION
  Report Type: Spontaneous
  Country: FR (occurrence: FR)
  Receive Date: 20180530
  Receipt Date: 20180625
  Transmission Date: 20180711
  Serious: Yes (Other)
  Sender: FDA-Public Use
  Company Number: PHHY2018FR008011

PATIENT
  Age: 55 Year
  Sex: Male
  Weight: 110 kg

DRUGS (1)
  1. COSENTYX [Suspect]
     Active Substance: SECUKINUMAB
     Indication: ANKYLOSING SPONDYLITIS
     Dosage: 300 MG, QMO (IN 2 INJECTIONS)
     Route: 058
     Dates: start: 201610

REACTIONS (3)
  - Inappropriate schedule of drug administration [Unknown]
  - Angina pectoris [Unknown]
  - Product storage error [Unknown]

NARRATIVE: CASE EVENT DATE: 201803
